FAERS Safety Report 5406725-3 (Version None)
Quarter: 2007Q3

REPORT INFORMATION
  Report Type: 
  Country: None (occurrence: None)
  Receive Date: 20070803
  Receipt Date: 20070718
  Transmission Date: 20080115
  Serious: Yes (Other)
  Sender: FDA-Public Use
  Company Number: 2007S1005328

PATIENT
  Age: 11 Year
  Sex: Female

DRUGS (6)
  1. MERCAPTAMINE BITARTRATE (MERCAPTAMINE BITARTRATE) (150 MG) [Suspect]
     Indication: CYSTINOSIS
     Dosage: ORAL; 879 MG/M**2; DAILY; ORAL
     Route: 048
     Dates: end: 20070601
  2. MERCAPTAMINE BITARTRATE (MERCAPTAMINE BITARTRATE) (150 MG) [Suspect]
     Indication: CYSTINOSIS
     Dosage: ORAL; 879 MG/M**2; DAILY; ORAL
     Route: 048
     Dates: start: 19961106
  3. POLYCITRA-LC (CON.) [Concomitant]
  4. 1-ALPHA-HYDROXYCHOLECALCIFEROL (CON.) [Concomitant]
  5. ENALAPRIL (CON.) [Concomitant]
  6. EPOETIN (CON.) [Concomitant]

REACTIONS (5)
  - ABDOMINAL PAIN [None]
  - BLOOD CREATININE INCREASED [None]
  - CARDIOLIPIN ANTIBODY POSITIVE [None]
  - HAEMOGLOBIN DECREASED [None]
  - SYSTEMIC LUPUS ERYTHEMATOSUS [None]
